FAERS Safety Report 8074639-9 (Version None)
Quarter: 2012Q1

REPORT INFORMATION
  Report Type: 
  Country: None (occurrence: None)
  Receive Date: 20120126
  Receipt Date: 20120123
  Transmission Date: 20120608
  Serious: Yes (Other)
  Sender: FDA-Public Use
  Company Number: GB-PFIZER INC-2011211871

PATIENT
  Age: 74 Year
  Sex: Female
  Weight: 70 kg

DRUGS (17)
  1. PARACETAMOL [Concomitant]
     Dosage: UNK
     Dates: start: 20110728, end: 20110825
  2. RAMIPRIL [Suspect]
     Dosage: UNK
     Route: 048
  3. FLUOROURACIL [Concomitant]
     Dosage: UNK
     Dates: start: 20110621, end: 20110802
  4. DILTIAZEM HCL [Concomitant]
     Dosage: UNK
     Dates: start: 20110513, end: 20110623
  5. ACETYLSALICYLIC ACID [Concomitant]
     Dosage: UNK
     Dates: start: 20110601, end: 20110630
  6. LEVOTHYROXINE [Concomitant]
     Dosage: UNK
     Dates: start: 20110728, end: 20110825
  7. SIMVASTATIN [Concomitant]
     Dosage: UNK
     Dates: start: 20110601, end: 20110630
  8. HYDROXOCOBALAMIN [Concomitant]
     Dosage: UNK
     Dates: start: 20110620, end: 20110621
  9. SIMVASTATIN [Concomitant]
     Dosage: UNK
     Dates: start: 20110728, end: 20110825
  10. CETIRIZINE [Concomitant]
     Dosage: UNK
     Dates: start: 20110513, end: 20110610
  11. ISPAGHULA HUSK [Concomitant]
     Dosage: UNK
     Dates: start: 20110601, end: 20110630
  12. AMITRIPTYLINE HYDROCHLORIDE [Concomitant]
     Dosage: UNK
     Dates: start: 20110601, end: 20110630
  13. LEVOTHYROXINE [Concomitant]
     Dosage: UNK
     Dates: start: 20110601, end: 20110630
  14. TRAMADOL [Concomitant]
     Dosage: UNK
     Dates: start: 20110601, end: 20110630
  15. INFLUENZA VIRUS VACCINE [Concomitant]
     Dosage: UNK
  16. ALCLOMETASONE DIPROPIONATE [Concomitant]
     Dosage: UNK
     Dates: start: 20110621, end: 20110802
  17. RISEDRONATE SODIUM [Concomitant]
     Dosage: UNK
     Dates: start: 20110601, end: 20110630

REACTIONS (1)
  - RESTLESSNESS [None]
